FAERS Safety Report 7341856-2 (Version None)
Quarter: 2011Q1

REPORT INFORMATION
  Report Type: 
  Country: None (occurrence: None)
  Receive Date: 20110309
  Receipt Date: 20110228
  Transmission Date: 20110831
  Serious: Yes (Other)
  Sender: FDA-Public Use
  Company Number: US-CEPHALON-2011000617

PATIENT
  Sex: Male
  Weight: 125 kg

DRUGS (15)
  1. LAMOTRIGINE [Concomitant]
  2. GABAPENTIN [Concomitant]
     Dates: start: 20090101
  3. LITHIUM CARBONATE ER [Concomitant]
  4. AMBIEN [Concomitant]
  5. NUVIGIL [Suspect]
     Indication: DEPRESSION
  6. IBUPROFEN [Concomitant]
  7. ALPRAZOLAM [Concomitant]
  8. AMLODIPINE [Concomitant]
     Dates: start: 20101101
  9. TERAZOSIN [Concomitant]
     Dates: start: 20100801
  10. NUVIGIL [Suspect]
     Indication: APATHY
     Route: 048
     Dates: start: 20110125
  11. BACLOFEN [Concomitant]
  12. SERTRALINE HYDROCHLORIDE [Concomitant]
  13. NORCO [Concomitant]
     Dates: start: 20080101
  14. RISPERIDIONE [Concomitant]
  15. LOVASTATIN [Concomitant]

REACTIONS (4)
  - TOOTH DISCOLOURATION [None]
  - DENTAL CARIES [None]
  - DRY MOUTH [None]
  - TOOTH DECALCIFICATION [None]
